FAERS Safety Report 7067806-4 (Version None)
Quarter: 2010Q4

REPORT INFORMATION
  Report Type: 
  Country: None (occurrence: None)
  Receive Date: 20101028
  Receipt Date: 20101018
  Transmission Date: 20110411
  Serious: Yes (Hospitalization)
  Sender: FDA-Public Use
  Company Number: PHHY2010US69831

PATIENT
  Age: 75 Year
  Sex: Male
  Weight: 75.283 kg

DRUGS (2)
  1. ZOMETA [Suspect]
     Indication: MULTIPLE MYELOMA
     Dosage: 4 MG EVERY 4 WEEKS
     Dates: start: 20100929
  2. VELCADE [Suspect]
     Indication: MULTIPLE MYELOMA
     Dosage: .4 MG WEEKLY FOR THREE WEEKS AND THEN WITH ONE WEEK OFF
     Route: 042
     Dates: start: 20100929

REACTIONS (2)
  - SPINAL COMPRESSION FRACTURE [None]
  - URINARY TRACT INFECTION [None]
